FAERS Safety Report 4822444-6 (Version None)
Quarter: 2005Q4

REPORT INFORMATION
  Report Type: 
  Country: None (occurrence: None)
  Receive Date: 20051108
  Receipt Date: 20051028
  Transmission Date: 20060501
  Serious: Yes (Other)
  Sender: FDA-Public Use
  Company Number: 2005UW16495

PATIENT
  Age: 69 Year
  Sex: Male
  Weight: 83.2 kg

DRUGS (2)
  1. PRILOSEC [Suspect]
     Route: 048
     Dates: start: 20010101, end: 20040401
  2. PRILOSEC OTC [Suspect]
     Route: 048
     Dates: start: 20040427, end: 20051026

REACTIONS (4)
  - ASTHENIA [None]
  - DYSPNOEA [None]
  - FATIGUE [None]
  - LOSS OF CONSCIOUSNESS [None]
